FAERS Safety Report 14764830 (Version 1)
Quarter: 2018Q2

REPORT INFORMATION
  Report Type: Report from Study
  Country: US (occurrence: US)
  Receive Date: 20180416
  Receipt Date: 20180416
  Transmission Date: 20180711
  Serious: Yes (Death, Other)
  Sender: FDA-Public Use
  Company Number: US-GILEAD-2018-0324317

PATIENT
  Age: 72 Year
  Sex: Female

DRUGS (15)
  1. XANAX [Concomitant]
     Active Substance: ALPRAZOLAM
  2. IBUPROFEN. [Concomitant]
     Active Substance: IBUPROFEN
  3. VITAMIN B12 [Concomitant]
     Active Substance: CYANOCOBALAMIN
  4. CYCLOBENZAPRINE. [Concomitant]
     Active Substance: CYCLOBENZAPRINE
  5. LEVOTHYROXINE SODIUM. [Concomitant]
     Active Substance: LEVOTHYROXINE SODIUM
  6. GARLIC                             /01570501/ [Concomitant]
     Active Substance: GARLIC
  7. IDELALISIB [Suspect]
     Active Substance: IDELALISIB
     Indication: CHRONIC LYMPHOCYTIC LEUKAEMIA
     Dosage: 150 MG, BID
     Route: 048
     Dates: start: 20180221, end: 20180408
  8. MELOXICAM. [Concomitant]
     Active Substance: MELOXICAM
  9. BUDESONIDE. [Concomitant]
     Active Substance: BUDESONIDE
  10. FEXOFENADINE [Concomitant]
     Active Substance: FEXOFENADINE\FEXOFENADINE HYDROCHLORIDE
  11. PROAIR HFA [Concomitant]
     Active Substance: ALBUTEROL SULFATE
  12. MONTELUKAST [Concomitant]
     Active Substance: MONTELUKAST SODIUM
  13. IPRATROPIUM [Concomitant]
     Active Substance: IPRATROPIUM
  14. ALLOPURINOL. [Concomitant]
     Active Substance: ALLOPURINOL
  15. KELP                               /00082201/ [Concomitant]
     Active Substance: IODINE

REACTIONS (3)
  - Fluid retention [Unknown]
  - Lymphoedema [Unknown]
  - Death [Fatal]

NARRATIVE: CASE EVENT DATE: 20180408
